FAERS Safety Report 11528224 (Version 1)
Quarter: 2015Q3

REPORT INFORMATION
  Report Type: Spontaneous
  Country: US (occurrence: US)
  Receive Date: 20150921
  Receipt Date: 20150921
  Transmission Date: 20151125
  Serious: No
  Sender: FDA-Public Use
  Company Number: US-ACTELION PHARMACEUTICALS US, INC.-A-NJ2014-105862

PATIENT
  Age: 56 Year
  Sex: Female

DRUGS (4)
  1. COUMADIN [Concomitant]
     Active Substance: WARFARIN SODIUM
  2. SILDENAFIL. [Concomitant]
     Active Substance: SILDENAFIL
  3. VENTAVIS [Suspect]
     Active Substance: ILOPROST
     Indication: COR PULMONALE CHRONIC
     Dosage: UNK
     Route: 055
  4. TRACLEER [Suspect]
     Active Substance: BOSENTAN
     Indication: COR PULMONALE CHRONIC
     Dosage: UNK
     Route: 048

REACTIONS (5)
  - Constipation [Unknown]
  - Malaise [Unknown]
  - Cystitis [Unknown]
  - Blood urine present [Unknown]
  - Anticoagulation drug level increased [Unknown]
